FAERS Safety Report 4809816-0 (Version None)
Quarter: 2005Q4

REPORT INFORMATION
  Report Type: 
  Country: None (occurrence: None)
  Receive Date: 20051026
  Receipt Date: 20050928
  Transmission Date: 20060501
  Serious: Yes (Other)
  Sender: FDA-Public Use
  Company Number: 2005AP05172

PATIENT
  Age: 89 Year
  Sex: Male

DRUGS (8)
  1. DIPRIVAN [Suspect]
     Indication: INDUCTION OF ANAESTHESIA
     Route: 042
  2. DIPRIVAN [Suspect]
     Indication: MAINTENANCE OF ANAESTHESIA
     Route: 042
  3. DIPRIVAN [Suspect]
     Route: 042
  4. DIPRIVAN [Suspect]
     Route: 042
  5. XYLOCAINE [Suspect]
     Indication: EPIDURAL ANAESTHESIA
     Route: 008
  6. XYLOCAINE [Suspect]
     Route: 008
  7. ANAPEINE [Suspect]
     Indication: EPIDURAL ANAESTHESIA
     Route: 008
  8. FENTANYL CITRATE [Concomitant]
     Indication: EPIDURAL ANAESTHESIA
     Route: 008

REACTIONS (3)
  - CARBON DIOXIDE INCREASED [None]
  - PROCEDURAL COMPLICATION [None]
  - RESPIRATORY ACIDOSIS [None]
